FAERS Safety Report 10757755 (Version 1)
Quarter: 2015Q1

REPORT INFORMATION
  Report Type: Spontaneous
  Country: US (occurrence: None)
  Receive Date: 20150202
  Receipt Date: 20150202
  Transmission Date: 20150721
  Serious: Yes (Other)
  Sender: FDA-Public Use
  Company Number: None

PATIENT
  Age: 73 Year
  Sex: Male

DRUGS (1)
  1. ETOMIDATE. [Suspect]
     Active Substance: ETOMIDATE

REACTIONS (2)
  - Blood pressure systolic increased [None]
  - Blood pressure diastolic increased [None]

NARRATIVE: CASE EVENT DATE: 20141222
